FAERS Safety Report 18599300 (Version 1)
Quarter: 2020Q4

REPORT INFORMATION
  Report Type: Report from Study
  Country: BR (occurrence: BR)
  Receive Date: 20201210
  Receipt Date: 20201210
  Transmission Date: 20210114
  Serious: Yes (Other)
  Sender: FDA-Public Use
  Company Number: NVSC2020BR070641

PATIENT
  Age: 9 Year
  Sex: Female

DRUGS (4)
  1. MIFLONIDE [Suspect]
     Active Substance: BUDESONIDE
     Indication: PRODUCT USED FOR UNKNOWN INDICATION
     Dosage: 400 MG
     Route: 065
  2. XOLAIR [Suspect]
     Active Substance: OMALIZUMAB
     Indication: ASTHMA
     Dosage: UNK
     Route: 065
     Dates: start: 201910
  3. AEROLIN [Concomitant]
     Active Substance: ALBUTEROL
     Indication: PRODUCT USED FOR UNKNOWN INDICATION
     Dosage: UNK
     Route: 065
  4. XOLAIR [Suspect]
     Active Substance: OMALIZUMAB
     Dosage: UNK
     Route: 065
     Dates: start: 20191112

REACTIONS (11)
  - Oxygen saturation decreased [Recovering/Resolving]
  - Asthmatic crisis [Unknown]
  - Eosinophil count increased [Unknown]
  - Drug ineffective [Unknown]
  - Infectious disease carrier [Recovering/Resolving]
  - Atelectasis [Unknown]
  - Pneumothorax [Recovering/Resolving]
  - Fatigue [Recovering/Resolving]
  - Productive cough [Recovering/Resolving]
  - Rhinorrhoea [Recovering/Resolving]
  - Blood immunoglobulin E increased [Unknown]

NARRATIVE: CASE EVENT DATE: 201910
